FAERS Safety Report 5570013-5 (Version None)
Quarter: 2007Q4

REPORT INFORMATION
  Report Type: 
  Country: None (occurrence: None)
  Receive Date: 20071220
  Receipt Date: 20071213
  Transmission Date: 20080405
  Serious: Yes (Other)
  Sender: FDA-Public Use
  Company Number: IE-PFIZER INC-2007105051

PATIENT
  Sex: Female

DRUGS (4)
  1. XANAX [Suspect]
     Indication: STRESS
     Route: 048
     Dates: start: 20060101, end: 20070101
  2. XANAX [Suspect]
     Indication: SLEEP DISORDER
  3. ZIMOVANE [Suspect]
     Indication: STRESS
     Route: 048
     Dates: start: 20060101, end: 20070101
  4. ZIMOVANE [Suspect]
     Indication: SLEEP DISORDER

REACTIONS (1)
  - ARTHRITIS [None]
